FAERS Safety Report 5619520-7 (Version None)
Quarter: 2008Q1

REPORT INFORMATION
  Report Type: 
  Country: None (occurrence: None)
  Receive Date: 20080111
  Receipt Date: 20070918
  Transmission Date: 20080703
  Serious: Yes (Hospitalization)
  Sender: FDA-Public Use
  Company Number: 2007SP003080

PATIENT
  Age: 62 Year
  Sex: Female
  Weight: 106.5953 kg

DRUGS (15)
  1. XOPENEX HFA [Suspect]
     Indication: ASTHMA
     Dosage: 90 UG;PRN;INHALATION
     Route: 055
     Dates: start: 20070608
  2. THYROID TAB [Concomitant]
  3. IMDUR [Concomitant]
  4. CARDIZEM [Concomitant]
  5. NEXIUM [Concomitant]
  6. COLACE [Concomitant]
  7. NEURONTIN [Concomitant]
  8. SEROQUEL [Concomitant]
  9. CLONOPIN [Concomitant]
  10. SINGULAIR [Concomitant]
  11. VITAMINS [Concomitant]
  12. ZOLPIDEM TARTRATE [Concomitant]
  13. ADVAIR HFA [Concomitant]
  14. ALBUTEROL [Concomitant]
  15. TYLENOL [Concomitant]

REACTIONS (9)
  - ASTHENIA [None]
  - CHEST PAIN [None]
  - DIZZINESS [None]
  - FUNGAL INFECTION [None]
  - HEART RATE INCREASED [None]
  - HYPERHIDROSIS [None]
  - MITRAL VALVE INCOMPETENCE [None]
  - NERVOUSNESS [None]
  - TRICUSPID VALVE INCOMPETENCE [None]
